FAERS Safety Report 7903230-7 (Version None)
Quarter: 2011Q4

REPORT INFORMATION
  Report Type: 
  Country: None (occurrence: None)
  Receive Date: 20111107
  Receipt Date: 20111101
  Transmission Date: 20120403
  Serious: Yes (Hospitalization, Other)
  Sender: FDA-Public Use
  Company Number: 2011SP004878

PATIENT
  Age: 42 Year
  Sex: Female
  Weight: 86.1834 kg

DRUGS (2)
  1. NUVARING [Suspect]
     Indication: CONTRACEPTION
     Dosage: 1 DF;QM ; 1 DF;QM
     Dates: start: 20060901, end: 20080201
  2. NUVARING [Suspect]
     Indication: CONTRACEPTION
     Dosage: 1 DF;QM ; 1 DF;QM
     Dates: start: 20080501, end: 20090201

REACTIONS (13)
  - MENTAL DISORDER [None]
  - DEEP VEIN THROMBOSIS [None]
  - ANAEMIA [None]
  - CERVICAL DYSPLASIA [None]
  - IRON DEFICIENCY ANAEMIA [None]
  - ACTIVATED PARTIAL THROMBOPLASTIN TIME SHORTENED [None]
  - HYPERCOAGULATION [None]
  - DYSFUNCTIONAL UTERINE BLEEDING [None]
  - EMOTIONAL DISORDER [None]
  - UTERINE LEIOMYOMA [None]
  - INTERNATIONAL NORMALISED RATIO DECREASED [None]
  - VARICOSE VEIN [None]
  - VENOUS INSUFFICIENCY [None]
